FAERS Safety Report 12527819 (Version 3)
Quarter: 2016Q3

REPORT INFORMATION
  Report Type: Spontaneous
  Country: JP (occurrence: JP)
  Receive Date: 20160705
  Receipt Date: 20160830
  Transmission Date: 20161109
  Serious: Yes (Hospitalization, Other)
  Sender: FDA-Public Use
  Company Number: JP-VIFOR (INTERNATIONAL) INC.-VIT-2016-03223

PATIENT
  Age: 71 Year
  Sex: Female

DRUGS (25)
  1. WARFARIN [Concomitant]
     Active Substance: WARFARIN
     Route: 048
     Dates: start: 201605
  2. MIRCERA [Suspect]
     Active Substance: METHOXY POLYETHYLENE GLYCOL-EPOETIN BETA
     Route: 042
     Dates: start: 201501, end: 201503
  3. NESP [Concomitant]
     Active Substance: DARBEPOETIN ALFA
     Route: 065
     Dates: start: 201111, end: 201204
  4. NESP [Concomitant]
     Active Substance: DARBEPOETIN ALFA
     Route: 065
     Dates: start: 201404, end: 201405
  5. MIRCERA [Suspect]
     Active Substance: METHOXY POLYETHYLENE GLYCOL-EPOETIN BETA
     Route: 042
     Dates: start: 201503
  6. FUTHAN [Concomitant]
     Active Substance: NAFAMOSTAT MESYLATE
     Dosage: DOSAGE UNCERTAIN
     Route: 065
  7. ALBUMIN HUMAN [Concomitant]
     Active Substance: ALBUMIN HUMAN
     Dosage: 44 DOSAGE FORMS
     Route: 065
     Dates: start: 2015
  8. ALBUMIN HUMAN [Concomitant]
     Active Substance: ALBUMIN HUMAN
     Dosage: 16 DOSAGE FORMS
     Route: 065
     Dates: start: 201605
  9. NESP [Concomitant]
     Active Substance: DARBEPOETIN ALFA
     Route: 065
     Dates: start: 201211, end: 201301
  10. NESP [Concomitant]
     Active Substance: DARBEPOETIN ALFA
     Route: 065
     Dates: start: 201402, end: 201403
  11. L CARTIN FF [Concomitant]
     Active Substance: LEVOCARNITINE
     Route: 048
     Dates: start: 201503, end: 201506
  12. MIRCERA [Suspect]
     Active Substance: METHOXY POLYETHYLENE GLYCOL-EPOETIN BETA
     Route: 042
     Dates: start: 201302, end: 201401
  13. MIRCERA [Suspect]
     Active Substance: METHOXY POLYETHYLENE GLYCOL-EPOETIN BETA
     Route: 042
     Dates: start: 201406, end: 201406
  14. MIRCERA [Suspect]
     Active Substance: METHOXY POLYETHYLENE GLYCOL-EPOETIN BETA
     Route: 042
     Dates: start: 201410, end: 201412
  15. MIRCERA [Suspect]
     Active Substance: METHOXY POLYETHYLENE GLYCOL-EPOETIN BETA
     Route: 042
     Dates: start: 201504, end: 201510
  16. MIRCERA [Suspect]
     Active Substance: METHOXY POLYETHYLENE GLYCOL-EPOETIN BETA
     Route: 042
     Dates: start: 201511, end: 201605
  17. ALBUMIN HUMAN [Concomitant]
     Active Substance: ALBUMIN HUMAN
     Dosage: 8 DOSAGE FORMS
     Route: 065
     Dates: start: 2013
  18. MIRCERA [Suspect]
     Active Substance: METHOXY POLYETHYLENE GLYCOL-EPOETIN BETA
     Indication: NEPHROGENIC ANAEMIA
     Route: 065
     Dates: start: 201108
  19. ALBUMIN HUMAN [Concomitant]
     Active Substance: ALBUMIN HUMAN
     Dosage: 11 DOSAGE FORMS
     Route: 065
     Dates: start: 2012
  20. ALBUMIN HUMAN [Concomitant]
     Active Substance: ALBUMIN HUMAN
     Dosage: 26 DOSAGE FORMS
     Route: 065
     Dates: start: 2014
  21. WARFARIN [Concomitant]
     Active Substance: WARFARIN
     Route: 048
     Dates: start: 201603, end: 201605
  22. MIRCERA [Suspect]
     Active Substance: METHOXY POLYETHYLENE GLYCOL-EPOETIN BETA
     Route: 042
     Dates: start: 201205, end: 201210
  23. MIRCERA [Suspect]
     Active Substance: METHOXY POLYETHYLENE GLYCOL-EPOETIN BETA
     Route: 042
     Dates: start: 201407
  24. FUTHAN [Concomitant]
     Active Substance: NAFAMOSTAT MESYLATE
     Dosage: DOSAGE UNCERTAIN
     Route: 065
  25. GRAMALIL [Concomitant]
     Active Substance: TIAPRIDE HYDROCHLORIDE
     Route: 048
     Dates: start: 201602

REACTIONS (25)
  - Large intestine polyp [Unknown]
  - Shunt occlusion [Unknown]
  - Ascites [Unknown]
  - Haematocrit decreased [Unknown]
  - Spondylolisthesis [Recovered/Resolved]
  - Sudden hearing loss [Unknown]
  - Decubitus ulcer [Unknown]
  - Carnitine deficiency [Unknown]
  - Decreased activity [Unknown]
  - Duodenal ulcer [Unknown]
  - Spinal operation [Unknown]
  - Large intestinal ulcer [Recovered/Resolved]
  - Cholelithiasis [Unknown]
  - Hypoglycaemia [Unknown]
  - Haemorrhage [Unknown]
  - Contusion [Unknown]
  - Intentional product use issue [Unknown]
  - Gallbladder neoplasm [Unknown]
  - Haemorrhoids [Recovered/Resolved]
  - Dyspnoea [Unknown]
  - Anaemia [Unknown]
  - Haemoglobin decreased [Unknown]
  - Deep vein thrombosis [Unknown]
  - Pneumonia [Unknown]
  - Thrombectomy [Unknown]

NARRATIVE: CASE EVENT DATE: 20111114
